FAERS Safety Report 7944750-9 (Version None)
Quarter: 2011Q4

REPORT INFORMATION
  Report Type: 
  Country: None (occurrence: None)
  Receive Date: 20111129
  Receipt Date: 20111117
  Transmission Date: 20120403
  Serious: Yes (Hospitalization)
  Sender: FDA-Public Use
  Company Number: US-JNJFOC-20111108156

PATIENT
  Sex: Female
  Weight: 50.8 kg

DRUGS (4)
  1. PREVACID [Concomitant]
  2. INFLIXIMAB, RECOMBINANT [Suspect]
     Route: 042
     Dates: start: 20110621
  3. INFLIXIMAB, RECOMBINANT [Suspect]
     Indication: INFLAMMATORY BOWEL DISEASE
     Route: 042
     Dates: start: 20110107
  4. VITAMIN [Concomitant]

REACTIONS (1)
  - INFLAMMATORY BOWEL DISEASE [None]
